FAERS Safety Report 22838468 (Version 2)
Quarter: 2023Q4

REPORT INFORMATION
  Report Type: Spontaneous
  Country: CA (occurrence: CA)
  Receive Date: 20230818
  Receipt Date: 20231220
  Transmission Date: 20240110
  Serious: Yes (Death, Other)
  Sender: FDA-Public Use
  Company Number: CA-HIKMA PHARMACEUTICALS USA INC.-CA-H14001-23-64312

PATIENT

DRUGS (6)
  1. ADCIRCA [Suspect]
     Active Substance: TADALAFIL
     Indication: Pulmonary arterial hypertension
     Dosage: 40MG
     Route: 065
  2. FUROSEMIDE [Suspect]
     Active Substance: FUROSEMIDE
     Indication: Product used for unknown indication
     Dosage: UNKNOWN
     Route: 065
  3. RAMIPRIL [Suspect]
     Active Substance: RAMIPRIL
     Indication: Product used for unknown indication
     Dosage: UNKNOWN
     Route: 065
  4. SPIRONOLACTONE [Suspect]
     Active Substance: SPIRONOLACTONE
     Indication: Peripheral swelling
     Dosage: UNKNOWN
     Route: 065
  5. SPIRONOLACTONE [Suspect]
     Active Substance: SPIRONOLACTONE
     Indication: Pain in extremity
  6. AMBRISENTAN [Suspect]
     Active Substance: AMBRISENTAN
     Indication: Pulmonary arterial hypertension
     Dosage: 5MG
     Route: 065

REACTIONS (20)
  - Death [Fatal]
  - Amnesia [Unknown]
  - Arthralgia [Unknown]
  - Autoimmune disorder [Unknown]
  - Blister [Unknown]
  - Confusional state [Unknown]
  - Flushing [Unknown]
  - Gait disturbance [Unknown]
  - Hair colour changes [Unknown]
  - Hypoacusis [Unknown]
  - Joint swelling [Unknown]
  - Pain in extremity [Unknown]
  - Pemphigoid [Unknown]
  - Peripheral swelling [Unknown]
  - Rash [Unknown]
  - Senile dementia [Unknown]
  - Skin disorder [Unknown]
  - Urinary tract infection [Unknown]
  - Visual impairment [Unknown]
  - Dementia [Unknown]
